FAERS Safety Report 13996900 (Version 4)
Quarter: 2017Q4

REPORT INFORMATION
  Report Type: Spontaneous
  Country: GB (occurrence: GB)
  Receive Date: 20170921
  Receipt Date: 20171114
  Transmission Date: 20180321
  Serious: Yes (Hospitalization, Other)
  Sender: FDA-Public Use
  Company Number: GB-PFIZER INC-2017403014

PATIENT
  Age: 65 Year
  Sex: Male
  Weight: 80 kg

DRUGS (3)
  1. FOLIC ACID. [Concomitant]
     Active Substance: FOLIC ACID
     Indication: FOLATE DEFICIENCY
     Dosage: 5 MG, 1X/DAY
     Route: 048
     Dates: start: 20170616
  2. PHENYTOIN. [Suspect]
     Active Substance: PHENYTOIN
     Indication: PETIT MAL EPILEPSY
     Dosage: 200 MG, 1X/DAY, STARTED BEFORE 2001
     Route: 048
     Dates: end: 20170715
  3. CLEXANE [Suspect]
     Active Substance: ENOXAPARIN SODIUM
     Indication: DEEP VEIN THROMBOSIS
     Dosage: 120 MG, 1X/DAY
     Route: 058
     Dates: start: 20170703, end: 20170713

REACTIONS (7)
  - Pyrexia [Recovering/Resolving]
  - Rash erythematous [Recovering/Resolving]
  - Product use in unapproved indication [Unknown]
  - Full blood count abnormal [Recovering/Resolving]
  - Musculoskeletal stiffness [Recovering/Resolving]
  - Purpura [Recovering/Resolving]
  - Systemic lupus erythematosus [Recovering/Resolving]

NARRATIVE: CASE EVENT DATE: 20170707
